FAERS Safety Report 24968904 (Version 1)
Quarter: 2025Q1

REPORT INFORMATION
  Report Type: Report from Study
  Country: US (occurrence: US)
  Receive Date: 20250214
  Receipt Date: 20250214
  Transmission Date: 20250409
  Serious: No
  Sender: AMNEAL
  Company Number: US-AMNEAL PHARMACEUTICALS-2024-AMRX-03182

PATIENT
  Sex: Male
  Weight: 82.6 kg

DRUGS (12)
  1. CARBIDOPA\LEVODOPA [Suspect]
     Active Substance: CARBIDOPA\LEVODOPA
     Indication: Parkinson^s disease
     Dosage: 195 MG, 2 CAPSULES, 4X/DAY (AT 10 AM, 2PM, 6PM,10PM)
     Route: 065
  2. LISINOPRIL [Suspect]
     Active Substance: LISINOPRIL
     Indication: Product used for unknown indication
     Dosage: 1 TABLETS, DAILY
     Route: 048
     Dates: start: 20230628, end: 20240816
  3. SINEMET [Concomitant]
     Active Substance: CARBIDOPA\LEVODOPA
     Indication: Parkinson^s disease
     Dosage: 50/200MG, 1 TABLETS, BEDTIME (1 AM)
     Route: 048
  4. SINEMET [Concomitant]
     Active Substance: CARBIDOPA\LEVODOPA
     Route: 065
     Dates: start: 20240820
  5. ROPINIROLE [Concomitant]
     Active Substance: ROPINIROLE
     Indication: Product used for unknown indication
     Dosage: 2 MILLIGRAM, 5X/DAY
     Route: 065
     Dates: start: 20240502
  6. ZANAFLEX [Concomitant]
     Active Substance: TIZANIDINE HYDROCHLORIDE
     Indication: Muscle spasms
     Dosage: 1 TABLETS, 3X/DAY AS NEEDED
     Route: 048
     Dates: start: 20240703
  7. VITAMIN B12 [Concomitant]
     Active Substance: CYANOCOBALAMIN
     Indication: Product used for unknown indication
     Dosage: 1 TABLETS, DAILY
     Route: 048
  8. SYNTHROID [Concomitant]
     Active Substance: LEVOTHYROXINE SODIUM
     Indication: Product used for unknown indication
     Dosage: 1 TABLETS, QD (BEFORE BREAKFAST)
     Route: 048
     Dates: start: 20230628
  9. PRILOSEC [Concomitant]
     Active Substance: OMEPRAZOLE MAGNESIUM
     Indication: Product used for unknown indication
     Dosage: 20 MG, 1 CAPSULES, QD
     Route: 048
     Dates: start: 20230628
  10. TADALAFIL [Concomitant]
     Active Substance: TADALAFIL
     Indication: Product used for unknown indication
     Dosage: 1 TABLETS, QD
     Dates: start: 20230327
  11. PNEUMOVAX 23 [Concomitant]
     Active Substance: PNEUMOCOCCAL VACCINE, POLYVALENT 23
     Indication: Product used for unknown indication
     Route: 030
     Dates: start: 20201109, end: 20201109
  12. ELAVIL [Concomitant]
     Active Substance: AMITRIPTYLINE HYDROCHLORIDE
     Indication: Product used for unknown indication
     Dosage: 1 TABLETS, QD (AT NIGHT)
     Route: 048
     Dates: start: 20240607, end: 20240820

REACTIONS (11)
  - Therapeutic response shortened [Unknown]
  - Freezing phenomenon [Unknown]
  - Tinnitus [Unknown]
  - Tremor [Unknown]
  - Speech disorder [Unknown]
  - Hypoaesthesia [Unknown]
  - Dysphonia [Unknown]
  - Balance disorder [Unknown]
  - Anxiety [Unknown]
  - Dizziness [Unknown]
  - Orthostatic hypotension [Recovering/Resolving]
